FAERS Safety Report 8144732-0 (Version None)
Quarter: 2012Q1

REPORT INFORMATION
  Report Type: 
  Country: None (occurrence: None)
  Receive Date: 20120217
  Receipt Date: 20120203
  Transmission Date: 20120608
  Serious: Yes (Other)
  Sender: FDA-Public Use
  Company Number: FR-WATSON-2012-01838

PATIENT
  Age: 80 Year
  Sex: Male

DRUGS (1)
  1. TRELSTAR [Suspect]
     Indication: PROSTATE CANCER
     Dosage: 22.5 MG ONCE EVERY 6 MONTHS
     Route: 030
     Dates: start: 20100601, end: 20110101

REACTIONS (5)
  - HOT FLUSH [None]
  - MUSCULAR WEAKNESS [None]
  - CEREBROVASCULAR ACCIDENT [None]
  - ROAD TRAFFIC ACCIDENT [None]
  - PAIN [None]
